FAERS Safety Report 9422845 (Version 1)
Quarter: 2013Q3

REPORT INFORMATION
  Report Type: Report from Study
  Country: US (occurrence: US)
  Receive Date: 20130726
  Receipt Date: 20130726
  Transmission Date: 20140515
  Serious: Yes (Hospitalization)
  Sender: FDA-Public Use
  Company Number: US-BAYER-2013-076381

PATIENT
  Age: 35 Year
  Sex: Female

DRUGS (4)
  1. STIVARGA [Suspect]
     Indication: RECTAL CANCER
     Dosage: 400 MG, 4 TABLETS DAILY
     Route: 048
     Dates: start: 20130614, end: 20130626
  2. STIVARGA [Suspect]
     Indication: RECTAL CANCER
     Dosage: 400 MG, 4 TABLETS DAILY
     Route: 048
     Dates: start: 20130712, end: 20130713
  3. STIVARGA [Suspect]
     Indication: RECTAL CANCER
     Dosage: 400 MG, 3 TABLETS DAILY
     Route: 048
     Dates: start: 20130717
  4. OXYCODONE [Concomitant]
     Indication: TUMOUR PAIN

REACTIONS (10)
  - Pyrexia [Recovered/Resolved]
  - Headache [Recovered/Resolved]
  - Fatigue [Not Recovered/Not Resolved]
  - Dehydration [Recovered/Resolved]
  - Rash generalised [Recovered/Resolved]
  - Oral pain [Not Recovered/Not Resolved]
  - Dry mouth [Not Recovered/Not Resolved]
  - Burning sensation [Not Recovered/Not Resolved]
  - Rash [Recovered/Resolved]
  - Insomnia [Not Recovered/Not Resolved]
